FAERS Safety Report 7481571-8 (Version None)
Quarter: 2011Q2

REPORT INFORMATION
  Report Type: 
  Country: None (occurrence: None)
  Receive Date: 20110516
  Receipt Date: 20110506
  Transmission Date: 20111010
  Serious: Yes (Hospitalization, Other)
  Sender: FDA-Public Use
  Company Number: US-ROCHE-717505

PATIENT
  Sex: Male
  Weight: 77.1 kg

DRUGS (2)
  1. ACCUTANE [Suspect]
     Route: 065
     Dates: start: 19961101, end: 19961125
  2. ACCUTANE [Suspect]
     Route: 065

REACTIONS (11)
  - CROHN'S DISEASE [None]
  - BRONCHITIS [None]
  - ANAL FISTULA [None]
  - INTESTINAL OBSTRUCTION [None]
  - INFLAMMATORY BOWEL DISEASE [None]
  - ORAL HERPES [None]
  - SUICIDE ATTEMPT [None]
  - RECTAL ABSCESS [None]
  - COLITIS ULCERATIVE [None]
  - DEPRESSION [None]
  - POUCHITIS [None]
